FAERS Safety Report 5541689-3 (Version None)
Quarter: 2007Q4

REPORT INFORMATION
  Report Type: 
  Country: None (occurrence: None)
  Receive Date: 20071210
  Receipt Date: 20071204
  Transmission Date: 20080405
  Serious: Yes (Death)
  Sender: FDA-Public Use
  Company Number: PHMT2007CA02373

PATIENT
  Sex: Female

DRUGS (1)
  1. VALSARTAN [Suspect]
     Dosage: 80 MG

REACTIONS (1)
  - PNEUMONIA [None]
